FAERS Safety Report 6200166-7 (Version None)
Quarter: 2009Q2

REPORT INFORMATION
  Report Type: 
  Country: None (occurrence: None)
  Receive Date: 20090522
  Receipt Date: 20090514
  Transmission Date: 20091009
  Serious: Yes (Other)
  Sender: FDA-Public Use
  Company Number: US-ALLERGAN-0906974US

PATIENT
  Sex: Female

DRUGS (2)
  1. BOTOX [Suspect]
     Indication: TORTICOLLIS
     Dosage: UNK, SINGLE
     Dates: start: 20071121, end: 20071121
  2. BOTOX [Suspect]
     Dosage: UNK, SINGLE
     Dates: start: 20080221, end: 20080221

REACTIONS (4)
  - BONE PAIN [None]
  - GAIT DISTURBANCE [None]
  - OEDEMA PERIPHERAL [None]
  - PAIN IN EXTREMITY [None]
